FAERS Safety Report 21789068 (Version 1)
Quarter: 2022Q4

REPORT INFORMATION
  Report Type: Spontaneous
  Country: US (occurrence: US)
  Receive Date: 20221228
  Receipt Date: 20221228
  Transmission Date: 20230113
  Serious: Yes (Other)
  Sender: FDA-Public Use
  Company Number: US-ELI_LILLY_AND_COMPANY-US202212012582

PATIENT
  Sex: Female

DRUGS (1)
  1. VERZENIO [Suspect]
     Active Substance: ABEMACICLIB
     Indication: Anaemia
     Dosage: 75 MG, BID
     Route: 048
     Dates: start: 2020

REACTIONS (9)
  - Loss of consciousness [Unknown]
  - Abdominal rigidity [Unknown]
  - Dizziness postural [Unknown]
  - Abdominal pain upper [Unknown]
  - Flatulence [Unknown]
  - Aspiration [Unknown]
  - Off label use [Unknown]
  - Nausea [Unknown]
  - Vomiting [Unknown]

NARRATIVE: CASE EVENT DATE: 20200101
